FAERS Safety Report 8768061 (Version 1)
Quarter: 2012Q4

REPORT INFORMATION
  Report Type: 
  Country: AT (occurrence: AT)
  Receive Date: 20120830
  Receipt Date: 20120830
  Transmission Date: 20130627
  Serious: Yes (Other)
  Sender: FDA-Public Use
  Company Number: AT-ELI_LILLY_AND_COMPANY-AT201208007638

PATIENT
  Sex: Female

DRUGS (3)
  1. TERIPARATIDE [Suspect]
     Indication: OSTEOGENESIS IMPERFECTA
     Dosage: UNK, qd
     Route: 058
     Dates: start: 20110203
  2. CALCIUM [Concomitant]
  3. VITAMIN D [Concomitant]

REACTIONS (3)
  - Fall [Unknown]
  - Hip fracture [Unknown]
  - Off label use [Unknown]
